FAERS Safety Report 7793425-8 (Version None)
Quarter: 2011Q4

REPORT INFORMATION
  Report Type: 
  Country: None (occurrence: None)
  Receive Date: 20111003
  Receipt Date: 20110927
  Transmission Date: 20120403
  Serious: Yes (Death)
  Sender: FDA-Public Use
  Company Number: PHHY2011JP75590

PATIENT
  Age: 66 Year
  Sex: Male
  Weight: 54.8 kg

DRUGS (2)
  1. ESTRAMUSTINE PHOSPHATE SODIUM [Concomitant]
     Indication: PROSTATE CANCER
     Dosage: 560 MG, QD
  2. DOCETAXEL [Suspect]
     Indication: PROSTATE CANCER
     Dosage: 30 MG/M2, QW

REACTIONS (3)
  - DEATH [None]
  - MALAISE [None]
  - GENERAL PHYSICAL HEALTH DETERIORATION [None]
